FAERS Safety Report 5678242-7 (Version None)
Quarter: 2008Q1

REPORT INFORMATION
  Report Type: 
  Country: None (occurrence: None)
  Receive Date: 20080319
  Receipt Date: 20080304
  Transmission Date: 20080703
  Serious: Yes (Hospitalization, Other)
  Sender: FDA-Public Use
  Company Number: 2008JP001160

PATIENT
  Age: 40 Year
  Sex: Female

DRUGS (2)
  1. PROGRAF [Suspect]
     Indication: STEM CELL TRANSPLANT
     Dosage: 0.5 MG, /D
  2. PREDNISOLONE [Concomitant]

REACTIONS (2)
  - MEASLES [None]
  - TOXIC EPIDERMAL NECROLYSIS [None]
